FAERS Safety Report 7379855-7 (Version None)
Quarter: 2011Q1

REPORT INFORMATION
  Report Type: 
  Country: None (occurrence: None)
  Receive Date: 20110324
  Receipt Date: 20110324
  Transmission Date: 20110831
  Serious: No
  Sender: FDA-Public Use
  Company Number: None

PATIENT
  Age: 64 Year
  Sex: Male
  Weight: 112.4 kg

DRUGS (1)
  1. ACETAMINOPHEN AND OXYCODONE HCL [Suspect]
     Indication: PAIN
     Dosage: 5/325 MG PRN PO
     Route: 048
     Dates: start: 20110119, end: 20110120

REACTIONS (6)
  - VOMITING [None]
  - NAUSEA [None]
  - URTICARIA [None]
  - SOMNOLENCE [None]
  - AGITATION [None]
  - PRURITUS [None]
